FAERS Safety Report 22162001 (Version 5)
Quarter: 2024Q4

REPORT INFORMATION
  Report Type: Spontaneous
  Country: US (occurrence: US)
  Receive Date: 20230331
  Receipt Date: 20241217
  Transmission Date: 20250115
  Serious: Yes (Hospitalization, Other)
  Sender: BAYER HEALTHCARE PHARMACEUTICALS INC.
  Company Number: US-BAYER-2023A039113

PATIENT
  Age: 31 Year
  Sex: Female
  Weight: 46.1 kg

DRUGS (3)
  1. SKYLA [Suspect]
     Active Substance: LEVONORGESTREL
     Dosage: 14?G/DAY
     Route: 015
     Dates: start: 20200526, end: 202303
  2. CLOBETASOL [Concomitant]
     Active Substance: CLOBETASOL
     Dosage: APPLY BY TOPICAL ROUTE 2  TIMES EVERY DAY A THIN LAYER  TO THE AFFECTED AREA(S)
     Route: 062
     Dates: start: 20221214
  3. HYDROXYZINE HYDROCHLORIDE [Concomitant]
     Active Substance: HYDROXYZINE HYDROCHLORIDE
     Indication: Pruritus
     Dosage: UNK
     Route: 048
     Dates: start: 20230103, end: 20230103

REACTIONS (11)
  - Pregnancy with contraceptive device [Recovered/Resolved]
  - Device breakage [Recovered/Resolved]
  - Embedded device [Recovered/Resolved]
  - Abdominal pain lower [Not Recovered/Not Resolved]
  - Rash [Recovered/Resolved]
  - Postpartum anxiety [Not Recovered/Not Resolved]
  - Progesterone increased [Recovered/Resolved]
  - Hypoaesthesia [Recovered/Resolved]
  - Drug ineffective [None]
  - Dermatitis atopic [None]
  - Pelvic pain [Recovered/Resolved]

NARRATIVE: CASE EVENT DATE: 20200501
